FAERS Safety Report 8485061-5 (Version None)
Quarter: 2012Q3

REPORT INFORMATION
  Report Type: 
  Country: None (occurrence: None)
  Receive Date: 20120703
  Receipt Date: 20120628
  Transmission Date: 20120928
  Serious: Yes (Other)
  Sender: FDA-Public Use
  Company Number: IN-ROXANE LABORATORIES, INC.-2012-RO-01492RO

PATIENT
  Age: 43 Year
  Sex: Female

DRUGS (3)
  1. OXCARBAZEPINE [Suspect]
     Indication: EPILEPSY
     Dosage: 1200 MG
  2. CLOBAZAM [Suspect]
     Indication: EPILEPSY
     Dosage: 20 MG
  3. ZONISAMIDE [Suspect]
     Indication: EPILEPSY
     Dosage: 100 MG

REACTIONS (6)
  - PATHOLOGICAL FRACTURE [None]
  - OSTEOMALACIA [None]
  - VITAMIN D DEFICIENCY [None]
  - BLOOD PARATHYROID HORMONE INCREASED [None]
  - OSTEOPOROSIS [None]
  - BROWN TUMOUR [None]
